FAERS Safety Report 6914329-6 (Version None)
Quarter: 2010Q3

REPORT INFORMATION
  Report Type: 
  Country: None (occurrence: None)
  Receive Date: 20100809
  Receipt Date: 20100805
  Transmission Date: 20110219
  Serious: Yes (Hospitalization)
  Sender: FDA-Public Use
  Company Number: US-BRISTOL-MYERS SQUIBB COMPANY-15227325

PATIENT
  Age: 69 Year
  Sex: Female
  Weight: 74 kg

DRUGS (9)
  1. CARBOPLATIN [Suspect]
     Indication: OVARIAN CANCER
     Dosage: AUC 5
     Route: 042
     Dates: start: 20100721
  2. PACLITAXEL [Suspect]
     Indication: OVARIAN CANCER
     Route: 042
     Dates: start: 20100721
  3. LEVOTHYROXINE [Concomitant]
     Indication: HYPOTHYROIDISM
     Route: 048
     Dates: start: 20080521
  4. LOVASTATIN [Concomitant]
     Indication: HYPERLIPIDAEMIA
     Route: 048
     Dates: start: 20090101
  5. ATENOLOL [Concomitant]
     Indication: HYPERTENSION
     Route: 048
     Dates: start: 20080101
  6. AZOR [Concomitant]
     Indication: HYPERTENSION
     Route: 048
     Dates: start: 20090101
  7. ALPRAZOLAM [Concomitant]
     Indication: ANXIETY
     Route: 048
     Dates: start: 20100501
  8. LORTAB [Concomitant]
     Indication: ABDOMINAL PAIN
     Dosage: 1DF=10/500MG
     Route: 048
     Dates: start: 20080101
  9. LORTAB [Concomitant]
     Indication: PELVIC PAIN
     Dosage: 1DF=10/500MG
     Route: 048
     Dates: start: 20080101

REACTIONS (2)
  - COLITIS [None]
  - VOMITING [None]
